FAERS Safety Report 12554404 (Version 3)
Quarter: 2016Q3

REPORT INFORMATION
  Report Type: Report from Study
  Country: US (occurrence: US)
  Receive Date: 20160713
  Receipt Date: 20160831
  Transmission Date: 20161109
  Serious: Yes (Hospitalization)
  Sender: FDA-Public Use
  Company Number: US-BIOGEN-2016BI00261956

PATIENT
  Sex: Female

DRUGS (1)
  1. AVONEX [Suspect]
     Active Substance: INTERFERON BETA-1A
     Indication: MULTIPLE SCLEROSIS
     Route: 030
     Dates: start: 20051117

REACTIONS (15)
  - Bone cyst [Not Recovered/Not Resolved]
  - Spinal column stenosis [Unknown]
  - Weight decreased [Unknown]
  - General symptom [Not Recovered/Not Resolved]
  - Hallucination [Unknown]
  - Screaming [Unknown]
  - Pain [Not Recovered/Not Resolved]
  - Visual impairment [Not Recovered/Not Resolved]
  - Neuralgia [Not Recovered/Not Resolved]
  - Injection site pain [Unknown]
  - Scoliosis [Recovered/Resolved]
  - Memory impairment [Unknown]
  - Arthropod bite [Not Recovered/Not Resolved]
  - Nerve compression [Not Recovered/Not Resolved]
  - Device dislocation [Unknown]

NARRATIVE: CASE EVENT DATE: 2007
